FAERS Safety Report 6861485-4 (Version None)
Quarter: 2010Q3

REPORT INFORMATION
  Report Type: 
  Country: None (occurrence: None)
  Receive Date: 20100715
  Receipt Date: 20100706
  Transmission Date: 20110219
  Serious: Yes (Hospitalization, Other)
  Sender: FDA-Public Use
  Company Number: 2010EU003174

PATIENT
  Age: 14 Year
  Sex: Male

DRUGS (2)
  1. TACROLIMUS [Suspect]
     Indication: RENAL TRANSPLANT
     Dosage: 0.1 MG/KG, UID/QD
  2. AMLODIPINE [Suspect]
     Indication: HYPERTENSION

REACTIONS (9)
  - DIARRHOEA [None]
  - DRUG INTERACTION [None]
  - GASTROENTERITIS VIRAL [None]
  - HAEMODIALYSIS [None]
  - HYPERTENSION [None]
  - IMMUNOSUPPRESSANT DRUG LEVEL INCREASED [None]
  - NEPHROPATHY TOXIC [None]
  - RENAL FAILURE ACUTE [None]
  - TRANSPLANT REJECTION [None]
